FAERS Safety Report 9134481 (Version 2)
Quarter: 2013Q2

REPORT INFORMATION
  Report Type: Spontaneous
  Country: US (occurrence: US)
  Receive Date: 20130304
  Receipt Date: 20130424
  Transmission Date: 20140414
  Serious: Yes (Life-Threatening)
  Sender: FDA-Public Use
  Company Number: US-BRISTOL-MYERS SQUIBB COMPANY-17427253

PATIENT
  Age: 54 Year
  Sex: Male

DRUGS (5)
  1. ONGLYZA TABS 5 MG [Suspect]
     Indication: DIABETES MELLITUS
     Route: 048
     Dates: start: 20130123, end: 20130129
  2. PEGASYS [Concomitant]
  3. NORVASC [Concomitant]
  4. METFORMIN HCL XR [Concomitant]
  5. HYZAAR [Concomitant]

REACTIONS (1)
  - Angioedema [Recovered/Resolved]
